FAERS Safety Report 10879232 (Version 1)
Quarter: 2015Q1

REPORT INFORMATION
  Report Type: Spontaneous
  Country: US (occurrence: US)
  Receive Date: 20150302
  Receipt Date: 20150302
  Transmission Date: 20150721
  Serious: No
  Sender: FDA-Public Use
  Company Number: US-GLAXOSMITHKLINE-US2015026022

PATIENT
  Age: 64 Year
  Sex: Female

DRUGS (1)
  1. ABREVA [Suspect]
     Active Substance: DOCOSANOL
     Indication: ORAL HERPES
     Dosage: UNK
     Dates: start: 20150214, end: 20150223

REACTIONS (9)
  - Application site pruritus [Not Recovered/Not Resolved]
  - Application site paraesthesia [Not Recovered/Not Resolved]
  - Drug ineffective [Unknown]
  - Skin ulcer [Not Recovered/Not Resolved]
  - Application site swelling [Not Recovered/Not Resolved]
  - Oral herpes [Not Recovered/Not Resolved]
  - Condition aggravated [Not Recovered/Not Resolved]
  - Application site pain [Not Recovered/Not Resolved]
  - Application site reaction [Not Recovered/Not Resolved]

NARRATIVE: CASE EVENT DATE: 20150214
